FAERS Safety Report 20201620 (Version 1)
Quarter: 2021Q4

REPORT INFORMATION
  Report Type: Spontaneous
  Country: US (occurrence: US)
  Receive Date: 20211217
  Receipt Date: 20211217
  Transmission Date: 20220303
  Serious: Yes (Death, Hospitalization)
  Sender: FDA-Public Use
  Company Number: US-NOVARTISPH-NVSC2021US286364

PATIENT
  Age: 58 Year
  Sex: Male

DRUGS (4)
  1. RANITIDINE [Suspect]
     Active Substance: RANITIDINE
     Indication: Gastrooesophageal reflux disease
     Dosage: 300 MG, QD
     Route: 048
     Dates: start: 201506, end: 202002
  2. RANITIDINE [Suspect]
     Active Substance: RANITIDINE
     Indication: Intestinal ulcer
  3. RANITIDINE [Suspect]
     Active Substance: RANITIDINE
     Indication: Gastrooesophageal reflux disease
     Dosage: 300 MG, QD
     Route: 048
     Dates: start: 201506, end: 202002
  4. RANITIDINE [Suspect]
     Active Substance: RANITIDINE
     Indication: Intestinal ulcer

REACTIONS (7)
  - Death [Fatal]
  - Bladder cancer stage IV [Unknown]
  - Gastrointestinal carcinoma [Unknown]
  - Hepatic cancer stage IV [Unknown]
  - Gastric cancer stage IV [Unknown]
  - Small intestine carcinoma [Unknown]
  - Gallbladder cancer stage IV [Unknown]

NARRATIVE: CASE EVENT DATE: 20201001
